FAERS Safety Report 15762826 (Version 2)
Quarter: 2020Q1

REPORT INFORMATION
  Report Type: Report from Study
  Country: None (occurrence: HU)
  Receive Date: 20181226
  Receipt Date: 20200201
  Transmission Date: 20200409
  Serious: Yes (Life-Threatening, Hospitalization, Disabling)
  Sender: FDA-Public Use
  Company Number: HU-ABBVIE-18P-076-2604404-00

PATIENT
  Age: 74 Year
  Sex: Male
  Weight: 80 kg

DRUGS (13)
  1. DUODOPA [Suspect]
     Active Substance: CARBIDOPA\LEVODOPA
     Route: 050
     Dates: start: 20171111
  2. ASPIRIN. [Concomitant]
     Active Substance: ASPIRIN
     Indication: MYOCARDIAL ISCHAEMIA
     Route: 048
     Dates: start: 1999
  3. TAMSOL [Concomitant]
     Indication: MICTURITION URGENCY
     Route: 048
     Dates: start: 201706
  4. COVEREX AS [Concomitant]
     Active Substance: PERINDOPRIL ARGININE
     Indication: HYPERTONIA
     Route: 048
     Dates: start: 1990
  5. DUODOPA [Suspect]
     Active Substance: CARBIDOPA\LEVODOPA
     Indication: PARKINSON^S DISEASE
     Dosage: TITRATION MD10..4ML; CD 2.8ML/H; ED1ML
     Route: 050
     Dates: start: 20170907, end: 20170910
  6. DIAPREL MR [Concomitant]
     Active Substance: GLICLAZIDE
     Indication: DIABETES MELLITUS
     Route: 048
     Dates: start: 1990
  7. DUODOPA [Suspect]
     Active Substance: CARBIDOPA\LEVODOPA
     Route: 050
     Dates: start: 20170910, end: 20171111
  8. DOXIUM [Concomitant]
     Active Substance: CALCIUM DOBESILATE
     Indication: DIABETIC MICROANGIOPATHY
     Route: 048
     Dates: start: 1990
  9. RALNEA [Concomitant]
     Indication: PARKINSON^S DISEASE
     Route: 048
     Dates: start: 2007
  10. COVEREX AS KOMB FORTE [Concomitant]
     Indication: HYPERTONIA
     Dosage: 10/2.5 MG
     Route: 048
     Dates: start: 1990
  11. UROXAL [Concomitant]
     Indication: MICTURITION URGENCY
     Route: 048
     Dates: start: 201706
  12. MERCKFORMIN XR [Concomitant]
     Indication: DIABETES MELLITUS
     Route: 048
     Dates: start: 1990
  13. GABAGAMMA [Concomitant]
     Active Substance: GABAPENTIN
     Indication: DIABETIC NEUROPATHY
     Route: 048
     Dates: start: 1990

REACTIONS (3)
  - Chronic inflammatory demyelinating polyradiculoneuropathy [Not Recovered/Not Resolved]
  - Intensive care unit acquired weakness [Not Recovered/Not Resolved]
  - Pneumonia [Not Recovered/Not Resolved]

NARRATIVE: CASE EVENT DATE: 20181204
